FAERS Safety Report 8988491 (Version 1)
Quarter: 2012Q4

REPORT INFORMATION
  Report Type: Spontaneous
  Country: US (occurrence: None)
  Receive Date: 20121224
  Receipt Date: 20121224
  Transmission Date: 20130627
  Serious: Yes (Life-Threatening)
  Sender: FDA-Public Use
  Company Number: None

PATIENT
  Age: 51 Year
  Sex: Male
  Weight: 96.6 kg

DRUGS (2)
  1. WARFARIN [Suspect]
     Indication: DVT
  2. HEPARIN [Suspect]
     Indication: DVT

REACTIONS (3)
  - International normalised ratio increased [None]
  - Headache [None]
  - Haemorrhage [None]
